FAERS Safety Report 12500663 (Version 4)
Quarter: 2025Q3

REPORT INFORMATION
  Report Type: Report from Study
  Country: KR (occurrence: KR)
  Receive Date: 20160627
  Receipt Date: 20250902
  Transmission Date: 20251021
  Serious: Yes (Other)
  Sender: PFIZER
  Company Number: KR-MLMSERVICE-20160616-0321420-2

PATIENT
  Age: 42 Year
  Sex: Female

DRUGS (7)
  1. IRINOTECAN HYDROCHLORIDE [Suspect]
     Active Substance: IRINOTECAN HYDROCHLORIDE
     Indication: Rectal cancer stage III
  2. FLUOROURACIL [Suspect]
     Active Substance: FLUOROURACIL
     Indication: Rectal cancer stage III
  3. OXALIPLATIN [Suspect]
     Active Substance: OXALIPLATIN
     Indication: Rectal cancer stage III
  4. CAPECITABINE [Suspect]
     Active Substance: CAPECITABINE
     Indication: Rectal cancer stage III
  5. LEUCOVORIN [Suspect]
     Active Substance: LEUCOVORIN\LEUCOVORIN CALCIUM
     Indication: Rectal cancer stage III
  6. ETOPOSIDE [Suspect]
     Active Substance: ETOPOSIDE
     Indication: Rectal cancer stage III
  7. IFOSFAMIDE [Suspect]
     Active Substance: IFOSFAMIDE
     Indication: Rectal cancer stage III

REACTIONS (1)
  - Endometrial disorder [Unknown]
